FAERS Safety Report 11167480 (Version 1)
Quarter: 2015Q2

REPORT INFORMATION
  Report Type: Spontaneous
  Country: GB (occurrence: GB)
  Receive Date: 20150605
  Receipt Date: 20150605
  Transmission Date: 20150821
  Serious: Yes (Disabling, Other)
  Sender: FDA-Public Use
  Company Number: GB-SUN PHARMACEUTICAL INDUSTRIES LTD-2015RR-97986

PATIENT

DRUGS (2)
  1. SALBUTAMOL [Concomitant]
     Active Substance: ALBUTEROL
     Indication: RALES
     Dosage: TAKE AS REQUIRED. INFREQUENT USE.
     Route: 055
     Dates: start: 2009
  2. LANSOPRAZOLE. [Suspect]
     Active Substance: LANSOPRAZOLE
     Indication: GASTRITIS
     Dosage: 30 MG
     Route: 048
     Dates: start: 20140326

REACTIONS (3)
  - Arthralgia [Not Recovered/Not Resolved]
  - Skin burning sensation [Not Recovered/Not Resolved]
  - Joint stiffness [Not Recovered/Not Resolved]

NARRATIVE: CASE EVENT DATE: 20140326
